FAERS Safety Report 5042365-6 (Version None)
Quarter: 2006Q2

REPORT INFORMATION
  Report Type: 
  Country: None (occurrence: None)
  Receive Date: 20060627
  Receipt Date: 20060615
  Transmission Date: 20061013
  Serious: Yes (Death, Hospitalization)
  Sender: FDA-Public Use
  Company Number: FRWYE733115JUN06

PATIENT
  Age: 75 Year
  Sex: Male

DRUGS (12)
  1. EFFEXOR [Suspect]
     Dosage: 50 MG 3X PER 1 DAY ORAL
     Route: 048
     Dates: end: 20060215
  2. ASPEGIC 1000 [Suspect]
     Dosage: 100 MG 1X PER 1 DAY ORAL
     Route: 048
     Dates: end: 20060215
  3. ARICEPT [Concomitant]
  4. OXAZEPAM [Concomitant]
  5. EBIXA (MEMANTINE HYDROCHLORIDE) [Concomitant]
  6. ATARAX [Concomitant]
  7. INEXIUM (ESOMEPRAZOLE) [Concomitant]
  8. DICETEL (PINAVERIUM BROMIDE) [Concomitant]
  9. METEOSPASMYL ( ALVERINE CITRATE/DL-METHIONINE) [Concomitant]
  10. LANSOYL (PARAFFIN) [Concomitant]
  11. LACTULOSE [Concomitant]
  12. PARAFFIN (PARAFFIN) [Concomitant]

REACTIONS (3)
  - BLOOD PRESSURE SYSTOLIC INCREASED [None]
  - BRAIN HERNIATION [None]
  - CEREBRAL HAEMORRHAGE [None]
